FAERS Safety Report 9669412 (Version 2)
Quarter: 2013Q4

REPORT INFORMATION
  Report Type: Spontaneous
  Country: ES (occurrence: ES)
  Receive Date: 20131105
  Receipt Date: 20131118
  Transmission Date: 20140711
  Serious: Yes (Death)
  Sender: FDA-Public Use
  Company Number: ES-JNJFOC-20131018459

PATIENT
  Age: 53 Year
  Sex: 0

DRUGS (10)
  1. DOXORUBICIN [Suspect]
     Indication: MANTLE CELL LYMPHOMA
     Route: 042
  2. DOXORUBICIN [Suspect]
     Indication: MANTLE CELL LYMPHOMA
     Route: 065
  3. RITUXIMAB [Suspect]
     Indication: MANTLE CELL LYMPHOMA
     Route: 065
  4. CYCLOPHOSPHAMIDE [Suspect]
     Indication: MANTLE CELL LYMPHOMA
     Route: 065
  5. VINCRISTINE [Suspect]
     Indication: MANTLE CELL LYMPHOMA
     Route: 065
  6. DEXAMETHASONE [Suspect]
     Indication: MANTLE CELL LYMPHOMA
     Route: 065
  7. METHOTREXATE [Suspect]
     Indication: MANTLE CELL LYMPHOMA
     Route: 065
  8. CYTARABINE [Suspect]
     Indication: MANTLE CELL LYMPHOMA
     Route: 065
  9. YTTRIUM 90 IBRITUMOMAB TIUXETAN [Suspect]
     Indication: MANTLE CELL LYMPHOMA
     Route: 065
  10. FILGRASTIM [Concomitant]
     Indication: PALLIATIVE CARE
     Route: 065

REACTIONS (1)
  - Rectal adenocarcinoma [Fatal]
